FAERS Safety Report 20941491 (Version 1)
Quarter: 2022Q2

REPORT INFORMATION
  Report Type: Spontaneous
  Country: FR (occurrence: FR)
  Receive Date: 20220610
  Receipt Date: 20220610
  Transmission Date: 20220720
  Serious: Yes (Life-Threatening)
  Sender: FDA-Public Use
  Company Number: FR-AFSSAPS-PP20220434

PATIENT
  Age: 40 Year
  Sex: Female
  Weight: 144 kg

DRUGS (9)
  1. MORPHINE [Suspect]
     Active Substance: MORPHINE
     Indication: Analgesic therapy
     Dosage: 2 MILLIGRAM, 2MG IF NEEDED
     Route: 042
     Dates: start: 20220218, end: 20220224
  2. PIPERACILLIN SODIUM\TAZOBACTAM SODIUM [Suspect]
     Active Substance: PIPERACILLIN SODIUM\TAZOBACTAM SODIUM
     Indication: Distributive shock
     Dosage: 4 GRAM, 4G/8H FOR 10 DAYS
     Route: 042
     Dates: start: 20220210, end: 20220220
  3. PIPERACILLIN SODIUM\TAZOBACTAM SODIUM [Suspect]
     Active Substance: PIPERACILLIN SODIUM\TAZOBACTAM SODIUM
     Indication: Sepsis
     Dosage: 4G/8H PENDANT 10 JOURS
     Route: 042
     Dates: start: 20220310, end: 20220310
  4. PRIVIGEN [Suspect]
     Active Substance: HUMAN IMMUNOGLOBULIN G
     Indication: Multisystem inflammatory syndrome in adults
     Dosage: 100 MILLIGRAM, DAILY, 100MG/D FOR TWO DAYS
     Route: 042
     Dates: start: 20220210, end: 20220211
  5. STROMECTOL [Suspect]
     Active Substance: IVERMECTIN
     Indication: Prophylaxis
     Dosage: 24 MILLIGRAM, 24MG SINGLE DOSE
     Route: 042
     Dates: start: 20220214, end: 20220214
  6. DOXYCYCLINE [Suspect]
     Active Substance: DOXYCYCLINE
     Indication: Distributive shock
     Dosage: 200 MILLIGRAM, DAILY, 4G/8H FOR 10 DAYS
     Route: 048
     Dates: start: 20220211, end: 20220217
  7. IOMERON [Suspect]
     Active Substance: IOMEPROL
     Indication: Computerised tomogram
     Dosage: 1DF
     Route: 042
     Dates: start: 20220215, end: 20220215
  8. IOMERON [Suspect]
     Active Substance: IOMEPROL
     Dosage: 1DF
     Route: 042
     Dates: start: 20220310, end: 20220310
  9. SUFENTA [Suspect]
     Active Substance: SUFENTANIL CITRATE
     Indication: Sedation
     Dosage: UNKNOWN
     Route: 042
     Dates: start: 20220216, end: 20220216

REACTIONS (3)
  - Rash [Recovered/Resolved]
  - Rash maculo-papular [Recovered/Resolved]
  - Anaphylactic reaction [Recovered/Resolved]

NARRATIVE: CASE EVENT DATE: 20220219
